FAERS Safety Report 5177231-9 (Version None)
Quarter: 2006Q4

REPORT INFORMATION
  Report Type: 
  Country: None (occurrence: None)
  Receive Date: 20061218
  Receipt Date: 20061205
  Transmission Date: 20070319
  Serious: Yes (Death)
  Sender: FDA-Public Use
  Company Number: DE-ELI_LILLY_AND_COMPANY-DE200612000768

PATIENT
  Age: 78 Year
  Sex: Female

DRUGS (1)
  1. YENTREVE [Suspect]
     Indication: URINARY INCONTINENCE
     Dosage: UNK, UNK
     Route: 048

REACTIONS (1)
  - DEATH [None]
